FAERS Safety Report 21940507 (Version 1)
Quarter: 2023Q1

REPORT INFORMATION
  Report Type: Spontaneous
  Country: GB (occurrence: GB)
  Receive Date: 20230201
  Receipt Date: 20230201
  Transmission Date: 20230418
  Serious: No
  Sender: FDA-Public Use
  Company Number: GB-EXELIXIS-CABO-22051477

PATIENT
  Age: 29 Year
  Sex: Male

DRUGS (1)
  1. CABOMETYX [Suspect]
     Active Substance: CABOZANTINIB S-MALATE
     Indication: Ewing^s sarcoma
     Dosage: 60 MG, QD
     Route: 048

REACTIONS (3)
  - Adverse drug reaction [Unknown]
  - Malignant neoplasm progression [Unknown]
  - Off label use [Unknown]
